FAERS Safety Report 22019763 (Version 1)
Quarter: 2023Q1

REPORT INFORMATION
  Report Type: Spontaneous
  Country: US (occurrence: US)
  Receive Date: 20230222
  Receipt Date: 20230222
  Transmission Date: 20230418
  Serious: No
  Sender: FDA-Public Use
  Company Number: US-ELI_LILLY_AND_COMPANY-US202302005892

PATIENT

DRUGS (4)
  1. TRULICITY [Suspect]
     Active Substance: DULAGLUTIDE
     Indication: Product used for unknown indication
     Dosage: UNK UNK, UNKNOWN
     Route: 065
  2. HUMULIN R [Concomitant]
     Active Substance: INSULIN HUMAN
     Indication: Product used for unknown indication
     Dosage: 110 U, EACH MORNING
     Route: 065
  3. HUMULIN R [Concomitant]
     Active Substance: INSULIN HUMAN
     Dosage: 105 U, DAILY
     Route: 065
  4. HUMULIN R [Concomitant]
     Active Substance: INSULIN HUMAN
     Dosage: 85 U, EACH EVENING
     Route: 065

REACTIONS (1)
  - Drug hypersensitivity [Unknown]
